FAERS Safety Report 19635253 (Version 2)
Quarter: 2021Q4

REPORT INFORMATION
  Report Type: Spontaneous
  Country: FR (occurrence: FR)
  Receive Date: 20210729
  Receipt Date: 20211101
  Transmission Date: 20220303
  Serious: Yes (Other)
  Sender: FDA-Public Use
  Company Number: FR-ROCHE-2861420

PATIENT
  Age: 55 Year
  Sex: Female

DRUGS (5)
  1. BEVACIZUMAB [Suspect]
     Active Substance: BEVACIZUMAB
     Indication: Non-small cell lung cancer
     Dosage: 625 MG, 1 OF CYCLE OF 21 DAYS
     Route: 042
     Dates: start: 20200910, end: 20200910
  2. ATEZOLIZUMAB [Suspect]
     Active Substance: ATEZOLIZUMAB
     Indication: Non-small cell lung cancer
     Dosage: 1200 MG, 1 OF CYCLE OF 21 DAYS
     Route: 042
     Dates: start: 20200910, end: 20200910
  3. CARBOPLATIN [Concomitant]
     Active Substance: CARBOPLATIN
     Indication: Non-small cell lung cancer
     Dosage: 430 MG, EVERY 1 CYCLE(S) DAY 1 OF CYCLE OF 21 DAYS
     Route: 042
     Dates: start: 20200910, end: 20200910
  4. PEMETREXED [Concomitant]
     Active Substance: PEMETREXED
     Indication: Non-small cell lung cancer
     Dosage: 650 MG, EVERY 1 CYCLE(S) DAY 1 OF CYCLE OF 21 DAYS
     Route: 042
     Dates: start: 20200910, end: 20200910
  5. LEVOTHYROXINE [Concomitant]
     Active Substance: LEVOTHYROXINE
     Dosage: UNK
     Dates: start: 20201102

REACTIONS (2)
  - Thyroid disorder [Recovered/Resolved]
  - Impaired healing [Recovered/Resolved]

NARRATIVE: CASE EVENT DATE: 20201001
